FAERS Safety Report 6732488-5 (Version None)
Quarter: 2010Q2

REPORT INFORMATION
  Report Type: 
  Country: None (occurrence: None)
  Receive Date: 20100519
  Receipt Date: 20100511
  Transmission Date: 20101027
  Serious: Yes (Life-Threatening, Other)
  Sender: FDA-Public Use
  Company Number: JP-PFIZER INC-2010052271

PATIENT
  Age: 61 Year
  Sex: Male
  Weight: 62 kg

DRUGS (4)
  1. GABAPEN [Suspect]
     Indication: CONVULSION
     Dosage: 800 MG, 3X/DAY
     Route: 048
     Dates: start: 20100131, end: 20100416
  2. LAMICTAL [Suspect]
     Indication: CONVULSION
     Dosage: 100 MG, 2X/DAY
     Route: 048
     Dates: start: 20100311, end: 20100412
  3. ALENDRONATE SODIUM [Suspect]
     Indication: OSTEOPOROSIS
     Dosage: 35 MG, WEEKLY
     Route: 048
     Dates: start: 20100311, end: 20100415
  4. TEGRETOL [Concomitant]
     Indication: CONVULSION
     Dosage: 400 MG, 3X/DAY
     Route: 048
     Dates: start: 20100108, end: 20100416

REACTIONS (8)
  - COMPUTERISED TOMOGRAM THORAX ABNORMAL [None]
  - EOSINOPHIL COUNT INCREASED [None]
  - FEBRILE NEUTROPENIA [None]
  - GRANULOCYTE COUNT DECREASED [None]
  - INTERSTITIAL LUNG DISEASE [None]
  - PNEUMOCYSTIS JIROVECI PNEUMONIA [None]
  - PYREXIA [None]
  - RESPIRATORY RATE DECREASED [None]
